FAERS Safety Report 18818244 (Version 1)
Quarter: 2021Q1

REPORT INFORMATION
  Report Type: Spontaneous
  Country: FR (occurrence: FR)
  Receive Date: 20210201
  Receipt Date: 20210201
  Transmission Date: 20210419
  Serious: Yes (Other)
  Sender: FDA-Public Use
  Company Number: NVSC2021FR019357

PATIENT
  Age: 35 Year
  Sex: Male
  Weight: 78 kg

DRUGS (6)
  1. AMOXICILLINE ACIDE CLAVULANIQUE SANDOZ [Suspect]
     Active Substance: AMOXICILLIN\CLAVULANATE POTASSIUM
     Indication: COVID-19 PNEUMONIA
     Dosage: 3 G, QD
     Route: 042
     Dates: start: 20201215, end: 20201218
  2. CORTANCYL [Suspect]
     Active Substance: PREDNISONE
     Indication: COVID-19 PNEUMONIA
     Dosage: 40 MG,QD
     Route: 048
     Dates: start: 20201219, end: 20201224
  3. LOVENOX [Suspect]
     Active Substance: ENOXAPARIN SODIUM
     Dosage: 12000 IU, QD
     Route: 058
     Dates: start: 20201217, end: 20201224
  4. LOVENOX [Suspect]
     Active Substance: ENOXAPARIN SODIUM
     Indication: THROMBOSIS PROPHYLAXIS
     Dosage: 8000 IU, QD
     Route: 058
     Dates: start: 20201215, end: 20201217
  5. AMOXICILLINE ACIDE CLAVULANIQUE SANDOZ [Suspect]
     Active Substance: AMOXICILLIN\CLAVULANATE POTASSIUM
     Dosage: 3 G, QD
     Route: 048
     Dates: start: 20201218, end: 20201221
  6. DEXAMETHASONE. [Concomitant]
     Active Substance: DEXAMETHASONE
     Indication: PRODUCT USED FOR UNKNOWN INDICATION
     Dosage: UNK
     Route: 065

REACTIONS (1)
  - Hepatocellular injury [Recovering/Resolving]

NARRATIVE: CASE EVENT DATE: 20201223
